FAERS Safety Report 19753065 (Version 2)
Quarter: 2021Q3

REPORT INFORMATION
  Report Type: Spontaneous
  Country: US (occurrence: US)
  Receive Date: 20210826
  Receipt Date: 20210907
  Transmission Date: 20211014
  Serious: Yes (Life-Threatening, Hospitalization)
  Sender: FDA-Public Use
  Company Number: US-TEVA-2021-US-1944723

PATIENT
  Age: 76 Year
  Sex: Female

DRUGS (6)
  1. PEMBROLIZUMAB. [Suspect]
     Active Substance: PEMBROLIZUMAB
     Indication: MALIGNANT MELANOMA
     Route: 050
  2. IMMUNE GLOBULIN (IMMUNOGLOBULINS NOS) [Suspect]
     Active Substance: IMMUNE GLOBULIN NOS
     Indication: PERICARDITIS
  3. PYRIDOSTIGMINE [Suspect]
     Active Substance: PYRIDOSTIGMINE
     Indication: MUSCULAR WEAKNESS
     Route: 065
  4. MYCOPHENOLATE [Suspect]
     Active Substance: MYCOPHENOLIC ACID
     Indication: IMMUNE-MEDIATED MYOCARDITIS
     Route: 065
  5. IMMUNE GLOBULIN (IMMUNOGLOBULINS NOS) [Suspect]
     Active Substance: IMMUNE GLOBULIN NOS
     Indication: IMMUNE-MEDIATED MYOCARDITIS
     Route: 042
  6. SOLU?MEDROL [Suspect]
     Active Substance: METHYLPREDNISOLONE SODIUM SUCCINATE
     Indication: IMMUNE-MEDIATED MYOCARDITIS
     Route: 065

REACTIONS (14)
  - Arrhythmia [Unknown]
  - Immune-mediated myositis [Unknown]
  - Immune-mediated dermatitis [Unknown]
  - Immune-mediated myocarditis [Unknown]
  - Pericarditis [Unknown]
  - Conduction disorder [Unknown]
  - Ophthalmoplegia [Unknown]
  - Immune-mediated hepatitis [Unknown]
  - Muscular weakness [Unknown]
  - Vasculitis [Unknown]
  - Polyneuropathy [Unknown]
  - Respiratory failure [Unknown]
  - Atrioventricular block [Unknown]
  - Drug ineffective [Unknown]
